FAERS Safety Report 22526580 (Version 1)
Quarter: 2023Q2

REPORT INFORMATION
  Report Type: Spontaneous
  Country: HU (occurrence: HU)
  Receive Date: 20230606
  Receipt Date: 20230606
  Transmission Date: 20230722
  Serious: Yes (Other)
  Sender: FDA-Public Use
  Company Number: HU-009507513-2306HUN000137

PATIENT
  Age: 60 Year
  Sex: Female

DRUGS (1)
  1. PEMBROLIZUMAB [Suspect]
     Active Substance: PEMBROLIZUMAB
     Indication: Malignant melanoma stage III
     Dosage: UNK

REACTIONS (6)
  - Sarcoid-like reaction [Recovered/Resolved]
  - Pneumonitis [Recovered/Resolved]
  - Autoimmune thyroiditis [Unknown]
  - Autoimmune hepatitis [Unknown]
  - Osteoporosis [Unknown]
  - Spinal compression fracture [Unknown]
